FAERS Safety Report 10079246 (Version 1)
Quarter: 2014Q2

REPORT INFORMATION
  Report Type: Spontaneous
  Country: US (occurrence: None)
  Receive Date: 20140414
  Receipt Date: 20140414
  Transmission Date: 20141212
  Serious: Yes (Other)
  Sender: FDA-Public Use
  Company Number: None

PATIENT
  Age: 24 Year
  Sex: Female

DRUGS (2)
  1. METHYLPHENIDATE ER [Suspect]
     Indication: ATTENTION DEFICIT/HYPERACTIVITY DISORDER
     Dosage: 1 54 MG PILL, ONCE DAILY, TAKEN BY MOUTH
     Route: 048
     Dates: start: 20140404, end: 20140411
  2. METHYLPHENIDATE ER [Suspect]
     Dosage: 1 54 MG PILL, ONCE DAILY, TAKEN BY MOUTH
     Route: 048
     Dates: start: 20140404, end: 20140411

REACTIONS (6)
  - Fatigue [None]
  - Insomnia [None]
  - Feeling jittery [None]
  - Depression [None]
  - Drug ineffective [None]
  - Product substitution issue [None]
